FAERS Safety Report 10112108 (Version 1)
Quarter: 2014Q2

REPORT INFORMATION
  Report Type: Report from Study
  Country: US (occurrence: US)
  Receive Date: 20140425
  Receipt Date: 20140425
  Transmission Date: 20141212
  Serious: Yes (Other)
  Sender: FDA-Public Use
  Company Number: US-ASTRAZENECA-2014SE28073

PATIENT
  Sex: Female

DRUGS (1)
  1. SYMBICORT  PMDI [Suspect]
     Indication: RESPIRATORY TRACT INFECTION
     Dosage: UNKNOWN DOSE AND FREQUENCY
     Route: 055

REACTIONS (3)
  - Dysphagia [Unknown]
  - Hypersensitivity [Recovered/Resolved]
  - Pharyngeal oedema [Unknown]
